FAERS Safety Report 5396445-6 (Version None)
Quarter: 2007Q3

REPORT INFORMATION
  Report Type: 
  Country: None (occurrence: None)
  Receive Date: 20070718
  Receipt Date: 20070315
  Transmission Date: 20080115
  Serious: Yes (Hospitalization, Other)
  Sender: FDA-Public Use
  Company Number: 2006143871

PATIENT
  Age: 43 Year
  Sex: Female
  Weight: 56.7 kg

DRUGS (3)
  1. CELEBREX [Suspect]
     Indication: ARTHRALGIA
     Dosage: 400 MG (200 MG, 2 IN 1 D), ORAL
     Route: 048
     Dates: start: 19990101, end: 20041107
  2. CELEBREX [Suspect]
     Indication: INFLAMMATION
     Dosage: 400 MG (200 MG, 2 IN 1 D), ORAL
     Route: 048
     Dates: start: 19990101, end: 20041107
  3. CELEBREX [Suspect]
     Indication: PAIN
     Dosage: 400 MG (200 MG, 2 IN 1 D), ORAL
     Route: 048
     Dates: start: 19990101, end: 20041107

REACTIONS (2)
  - ANXIETY [None]
  - CEREBROVASCULAR ACCIDENT [None]
